FAERS Safety Report 7241226-1 (Version None)
Quarter: 2011Q1

REPORT INFORMATION
  Report Type: 
  Country: None (occurrence: None)
  Receive Date: 20110124
  Receipt Date: 20110114
  Transmission Date: 20110831
  Serious: Yes (Hospitalization)
  Sender: FDA-Public Use
  Company Number: A0788536A

PATIENT
  Age: 58 Year
  Sex: Female
  Weight: 78.2 kg

DRUGS (6)
  1. ACCUPRIL [Concomitant]
  2. ZOLOFT [Concomitant]
  3. TOPROL-XL [Concomitant]
  4. CELEBREX [Concomitant]
     Dates: end: 20040101
  5. LIPITOR [Concomitant]
  6. AVANDIA [Suspect]
     Indication: DIABETES MELLITUS
     Dosage: 4MG PER DAY
     Route: 048
     Dates: start: 20020101, end: 20070101

REACTIONS (4)
  - MYOCARDIAL INFARCTION [None]
  - TRANSIENT ISCHAEMIC ATTACK [None]
  - HEART INJURY [None]
  - CEREBROVASCULAR ACCIDENT [None]
